FAERS Safety Report 8522435-8 (Version None)
Quarter: 2012Q3

REPORT INFORMATION
  Report Type: 
  Country: None (occurrence: None)
  Receive Date: 20120719
  Receipt Date: 20120718
  Transmission Date: 20120928
  Serious: Yes (Other)
  Sender: FDA-Public Use
  Company Number: CN-PFIZER INC-2012172863

PATIENT
  Age: 51 Year
  Sex: Male

DRUGS (1)
  1. VARENICLINE TARTRATE [Suspect]
     Dosage: 1 DF, 1X/DAY
     Route: 048
     Dates: start: 20120709

REACTIONS (3)
  - DIZZINESS [None]
  - NAUSEA [None]
  - CYANOSIS [None]
